FAERS Safety Report 16215961 (Version 2)
Quarter: 2019Q2

REPORT INFORMATION
  Report Type: Spontaneous
  Country: US (occurrence: US)
  Receive Date: 20190419
  Receipt Date: 20190524
  Transmission Date: 20190711
  Serious: No
  Sender: FDA-Public Use
  Company Number: US-SHIRE-US201912739

PATIENT
  Age: 59 Year
  Sex: Female

DRUGS (1)
  1. NATPARA (PARATHYROID HORMONE) [Suspect]
     Active Substance: PARATHYROID HORMONE
     Indication: PRODUCT USED FOR UNKNOWN INDICATION
     Dosage: 25 MICROGRAM, 1X/DAY:QD
     Route: 065
     Dates: start: 20170420

REACTIONS (6)
  - Vertigo [Recovering/Resolving]
  - Contusion [Recovering/Resolving]
  - Pain [Unknown]
  - Fall [Recovering/Resolving]
  - Swelling face [Recovering/Resolving]
  - Eye contusion [Recovering/Resolving]

NARRATIVE: CASE EVENT DATE: 20190329
